FAERS Safety Report 7234480-3 (Version None)
Quarter: 2011Q1

REPORT INFORMATION
  Report Type: 
  Country: None (occurrence: None)
  Receive Date: 20110119
  Receipt Date: 20110112
  Transmission Date: 20110831
  Serious: Yes (Hospitalization)
  Sender: FDA-Public Use
  Company Number: BR-ELI_LILLY_AND_COMPANY-BR201101003109

PATIENT
  Sex: Male
  Weight: 112 kg

DRUGS (9)
  1. ACTOS [Concomitant]
     Indication: DIABETES MELLITUS
     Dosage: 30 MG, DAILY (1/D)
     Route: 048
     Dates: start: 20100901
  2. BYETTA [Suspect]
     Dosage: 10 UG, UNKNOWN
     Route: 065
  3. ATENSINA [Concomitant]
     Dosage: 0.15 MG, 2/D
     Route: 065
     Dates: start: 20101001
  4. DIMEFOR [Concomitant]
     Indication: DIABETES MELLITUS
     Dosage: 850 MG, 2/D
     Route: 048
  5. OMEPRAZOLE [Concomitant]
     Indication: GASTRIC DISORDER
     Dosage: 20 MG, 2/D
     Route: 048
  6. BYETTA [Suspect]
     Indication: DIABETES MELLITUS
     Dosage: 10 UG, 2/D
     Route: 065
     Dates: start: 20100101
  7. TOPIRAMATE [Concomitant]
     Indication: MOOD ALTERED
     Dosage: 100 MG, 2/D
     Route: 048
  8. PRISTIQ [Concomitant]
     Indication: MOOD ALTERED
     Dosage: 100 MG, DAILY (1/D)
     Route: 048
  9. PREDNISONE [Concomitant]
     Indication: LUNG DISORDER
     Dosage: 20 MG, DAILY (1/D)
     Route: 048

REACTIONS (7)
  - NEPHROLITHIASIS [None]
  - LUNG DISORDER [None]
  - NAUSEA [None]
  - FREQUENT BOWEL MOVEMENTS [None]
  - VOMITING [None]
  - RETCHING [None]
  - WEIGHT INCREASED [None]
